FAERS Safety Report 10751614 (Version 1)
Quarter: 2015Q1

REPORT INFORMATION
  Report Type: Spontaneous
  Country: US (occurrence: US)
  Receive Date: 20150130
  Receipt Date: 20150130
  Transmission Date: 20150721
  Serious: No
  Sender: FDA-Public Use
  Company Number: US-PFIZER INC-2015036374

PATIENT
  Age: 52 Year
  Sex: Female
  Weight: 59 kg

DRUGS (9)
  1. EFFEXOR XR [Suspect]
     Active Substance: VENLAFAXINE HYDROCHLORIDE
     Dosage: CUT THE PILLS
     Dates: start: 201412
  2. NEURONTIN [Concomitant]
     Active Substance: GABAPENTIN
     Indication: MENTAL DISORDER
     Dosage: 300 MG, 3X/DAY
  3. EFFEXOR XR [Suspect]
     Active Substance: VENLAFAXINE HYDROCHLORIDE
     Indication: MENTAL DISORDER
     Dosage: 150MG PLUS 75MG, 1X/DAY
     Dates: start: 201405, end: 201412
  4. ATIVAN [Concomitant]
     Active Substance: LORAZEPAM
     Indication: ANXIETY
     Dosage: 1 MG, 1X/DAY
  5. ELAVIL [Concomitant]
     Active Substance: AMITRIPTYLINE HYDROCHLORIDE
     Indication: SLEEP DISORDER
     Dosage: 3 TABLETS OF 25MG, DAILY (AT NIGHT)
  6. TOPAMAX [Concomitant]
     Active Substance: TOPIRAMATE
     Indication: MENTAL DISORDER
     Dosage: 25 MG, 1X/DAY
  7. NEURONTIN [Concomitant]
     Active Substance: GABAPENTIN
     Indication: NERVOUSNESS
  8. TRAZODONE [Concomitant]
     Active Substance: TRAZODONE HYDROCHLORIDE
     Indication: SLEEP DISORDER
     Dosage: 50-100MG
  9. METOPROLOL [Concomitant]
     Active Substance: METOPROLOL
     Indication: TACHYCARDIA
     Dosage: 25 MG, 2X/DAY

REACTIONS (4)
  - Nervousness [Recovered/Resolved]
  - Tremor [Recovered/Resolved]
  - Intentional product misuse [Recovered/Resolved]
  - Tremor [Recovered/Resolved]

NARRATIVE: CASE EVENT DATE: 201412
